FAERS Safety Report 21582199 (Version 2)
Quarter: 2022Q4

REPORT INFORMATION
  Report Type: Report from Study
  Country: AU (occurrence: AU)
  Receive Date: 20221111
  Receipt Date: 20221114
  Transmission Date: 20230112
  Serious: Yes (Other)
  Sender: FDA-Public Use
  Company Number: AU-002147023-NVSC2022AU171707

PATIENT
  Age: 41 Year
  Sex: Male

DRUGS (1)
  1. KESIMPTA [Suspect]
     Active Substance: OFATUMUMAB
     Indication: Relapsing-remitting multiple sclerosis
     Dosage: 20 MG, QMO
     Route: 058
     Dates: start: 20220617

REACTIONS (3)
  - Pneumonia [Unknown]
  - SARS-CoV-2 test positive [Unknown]
  - Headache [Unknown]

NARRATIVE: CASE EVENT DATE: 20221108
